FAERS Safety Report 11209220 (Version 1)
Quarter: 2015Q2

REPORT INFORMATION
  Report Type: Spontaneous
  Country: HR (occurrence: HR)
  Receive Date: 20150622
  Receipt Date: 20150622
  Transmission Date: 20150821
  Serious: Yes (Other)
  Sender: FDA-Public Use
  Company Number: ALCN2015HR003925

PATIENT
  Age: 33 Year
  Sex: Male
  Weight: 100 kg

DRUGS (1)
  1. MAXITROL [Suspect]
     Active Substance: DEXAMETHASONE\NEOMYCIN SULFATE\POLYMYXIN B SULFATE
     Indication: CONJUNCTIVITIS
     Dosage: 1 GTT, TID
     Route: 047
     Dates: start: 20150603, end: 20150604

REACTIONS (5)
  - Erythema of eyelid [Recovering/Resolving]
  - Eye pruritus [Recovering/Resolving]
  - Eyelids pruritus [Recovering/Resolving]
  - Periorbital oedema [Recovering/Resolving]
  - Ocular hyperaemia [Recovering/Resolving]

NARRATIVE: CASE EVENT DATE: 20150604
